FAERS Safety Report 11556135 (Version 4)
Quarter: 2016Q1

REPORT INFORMATION
  Report Type: Report from Study
  Country: JP (occurrence: JP)
  Receive Date: 20150925
  Receipt Date: 20160203
  Transmission Date: 20160525
  Serious: Yes (Death, Other)
  Sender: FDA-Public Use
  Company Number: JP-CELGENE-JPN-2015095999

PATIENT
  Age: 64 Year
  Sex: Female

DRUGS (9)
  1. NEUROTROPIN [Concomitant]
     Active Substance: NEUROTROPIN
     Indication: PLASMA CELL MYELOMA
     Route: 048
  2. LOXOPROFEN NA [Concomitant]
     Active Substance: LOXOPROFEN SODIUM
     Indication: PLASMA CELL MYELOMA
     Route: 062
  3. LENADEX [Suspect]
     Active Substance: DEXAMETHASONE ACETATE
     Indication: PLASMA CELL MYELOMA
     Route: 048
     Dates: start: 20150715, end: 20150805
  4. CALONAL [Concomitant]
     Active Substance: ACETAMINOPHEN
     Indication: PLASMA CELL MYELOMA
     Route: 048
  5. LENADEX [Suspect]
     Active Substance: DEXAMETHASONE ACETATE
     Route: 048
     Dates: start: 20150812, end: 20150819
  6. POMALYST [Suspect]
     Active Substance: POMALIDOMIDE
     Indication: PLASMA CELL MYELOMA
     Route: 048
     Dates: start: 20150715, end: 20150804
  7. POMALYST [Suspect]
     Active Substance: POMALIDOMIDE
     Route: 048
     Dates: start: 20150812, end: 20150823
  8. METHYCOBAL [Concomitant]
     Active Substance: METHYLCOBALAMIN
     Indication: PLASMA CELL MYELOMA
     Route: 048
  9. KETOPROFEN. [Concomitant]
     Active Substance: KETOPROFEN
     Indication: PLASMA CELL MYELOMA
     Route: 062

REACTIONS (5)
  - Chronic kidney disease [Fatal]
  - Haemoglobin decreased [Unknown]
  - Plasma cell myeloma [Fatal]
  - Blood calcium decreased [Unknown]
  - Shunt malfunction [Fatal]

NARRATIVE: CASE EVENT DATE: 20150721
